FAERS Safety Report 7441512-6 (Version None)
Quarter: 2011Q2

REPORT INFORMATION
  Report Type: 
  Country: None (occurrence: None)
  Receive Date: 20110428
  Receipt Date: 20110426
  Transmission Date: 20111010
  Serious: Yes (Other)
  Sender: FDA-Public Use
  Company Number: US-AMGEN-USASP2011018741

PATIENT
  Age: 41 Year
  Sex: Male
  Weight: 70.748 kg

DRUGS (2)
  1. NPLATE [Suspect]
     Indication: IDIOPATHIC THROMBOCYTOPENIC PURPURA
     Dosage: 71 A?G, UNK
     Route: 058
     Dates: start: 20100610, end: 20100618
  2. RITUXIMAB [Concomitant]

REACTIONS (1)
  - PLATELET COUNT INCREASED [None]
